FAERS Safety Report 4406458-6 (Version None)
Quarter: 2004Q3

REPORT INFORMATION
  Report Type: 
  Country: None (occurrence: None)
  Receive Date: 20040723
  Receipt Date: 20030929
  Transmission Date: 20050211
  Serious: Yes (Hospitalization, Other)
  Sender: FDA-Public Use
  Company Number: US-MERCK-0310USA00115

PATIENT
  Age: 43 Year
  Sex: Male
  Weight: 84 kg

DRUGS (8)
  1. [THERAPY UNSPECIFIED] [Concomitant]
     Route: 065
  2. VICODIN [Concomitant]
     Route: 065
  3. FLEXERIL [Concomitant]
     Route: 048
  4. NEURONTIN [Concomitant]
     Route: 065
  5. VIOXX [Suspect]
     Indication: INFLAMMATION
     Route: 048
     Dates: start: 19990901, end: 20030101
  6. VIOXX [Suspect]
     Indication: PAIN
     Route: 048
     Dates: start: 19990901, end: 20030101
  7. DESYREL [Concomitant]
     Route: 065
  8. EFFEXOR [Concomitant]
     Route: 065

REACTIONS (14)
  - BENIGN COLONIC POLYP [None]
  - DEPRESSION [None]
  - DIVERTICULUM INTESTINAL [None]
  - DUODENAL ULCER [None]
  - GASTRIC ULCER [None]
  - GASTRITIS [None]
  - GASTROINTESTINAL HAEMORRHAGE [None]
  - HAEMORRHOIDS [None]
  - HEADACHE [None]
  - HELICOBACTER PYLORI IDENTIFICATION TEST POSITIVE [None]
  - PERFORATED ULCER [None]
  - PSEUDODIVERTICULAR DISEASE [None]
  - SLEEP DISORDER [None]
  - STRESS SYMPTOMS [None]
